FAERS Safety Report 8805872 (Version 2)
Quarter: 2012Q4

REPORT INFORMATION
  Report Type: 
  Country: GB (occurrence: GB)
  Receive Date: 20120925
  Receipt Date: 20121029
  Transmission Date: 20130627
  Serious: Yes (Death, Hospitalization, Other)
  Sender: FDA-Public Use
  Company Number: GB-ABBOTT-12P-167-0985711-00

PATIENT
  Age: 32 None
  Sex: Male
  Weight: 55.1 kg

DRUGS (19)
  1. HUMIRA [Suspect]
     Indication: CROHN^S DISEASE
     Dates: start: 20110302
  2. HUMIRA [Suspect]
     Indication: COLITIS ULCERATIVE
     Dosage: Reloading
     Dates: start: 20110301
  3. HUMIRA [Suspect]
     Dates: start: 20110216
  4. INFLIXIMAB [Suspect]
     Indication: CROHN^S DISEASE
     Dosage: 8 weekly
     Route: 042
     Dates: start: 201009, end: 201101
  5. INFLIXIMAB [Suspect]
     Dosage: 8 weekly
     Route: 042
     Dates: start: 201005, end: 201007
  6. INFLIXIMAB [Suspect]
     Dosage: 3 doses
     Route: 042
     Dates: start: 200508
  7. AZATHIOPRINE [Suspect]
     Indication: CROHN^S DISEASE
     Route: 048
     Dates: start: 200503, end: 20110422
  8. PENTASA [Concomitant]
     Indication: CROHN^S DISEASE
     Route: 048
     Dates: start: 200407, end: 20110422
  9. PREDNISOLONE [Concomitant]
     Indication: CROHN^S DISEASE
     Dosage: 25mg reducing variable dose
     Route: 048
     Dates: start: 201012
  10. PANTOPRAZOLE [Concomitant]
     Indication: PRODUCT USED FOR UNKNOWN INDICATION
     Route: 042
  11. DEXAMETHASONE [Concomitant]
     Indication: PRODUCT USED FOR UNKNOWN INDICATION
     Route: 042
  12. CHLORHEXIDINE [Concomitant]
     Indication: PRODUCT USED FOR UNKNOWN INDICATION
     Route: 061
  13. PROPOFOL [Concomitant]
     Indication: PRODUCT USED FOR UNKNOWN INDICATION
     Dosage: 1% 0-20ml/hr
  14. ALFETANIL [Concomitant]
     Indication: PRODUCT USED FOR UNKNOWN INDICATION
     Dosage: 500 mcg/ml 0-5 ml/hr
  15. NORADRENALINE [Concomitant]
     Indication: PRODUCT USED FOR UNKNOWN INDICATION
     Dosage: 80mg/500, ls
     Route: 042
  16. TPN [Concomitant]
     Indication: PRODUCT USED FOR UNKNOWN INDICATION
     Dosage: i.v as per protocol
  17. FOLINIC ACID [Concomitant]
     Indication: PRODUCT USED FOR UNKNOWN INDICATION
     Route: 042
  18. VITAMIN K [Concomitant]
     Indication: PRODUCT USED FOR UNKNOWN INDICATION
  19. CICLOSPORIN [Concomitant]
     Indication: PRODUCT USED FOR UNKNOWN INDICATION
     Route: 042

REACTIONS (24)
  - Secondary immunodeficiency [Fatal]
  - Epstein-Barr virus infection [Fatal]
  - Hodgkin^s disease [Fatal]
  - Lymphoproliferative disorder [Fatal]
  - Crohn^s disease [Fatal]
  - Gastrointestinal haemorrhage [Fatal]
  - Haemoptysis [Unknown]
  - Condition aggravated [Unknown]
  - Pancytopenia [Unknown]
  - Neutropenia [Unknown]
  - Neutropenic sepsis [Unknown]
  - Bradycardia [Unknown]
  - Syncope [Unknown]
  - Histiocytosis haematophagic [Unknown]
  - Acute hepatic failure [Unknown]
  - Oedema peripheral [Unknown]
  - Pulmonary oedema [Unknown]
  - Pulmonary alveolar haemorrhage [Unknown]
  - Hepatic steatosis [Unknown]
  - Coagulopathy [Unknown]
  - Haemorrhage [Unknown]
  - Status epilepticus [Unknown]
  - Multi-organ failure [Unknown]
  - Cardio-respiratory arrest [Unknown]
